FAERS Safety Report 4799764-7 (Version None)
Quarter: 2005Q4

REPORT INFORMATION
  Report Type: 
  Country: None (occurrence: None)
  Receive Date: 20051012
  Receipt Date: 20051012
  Transmission Date: 20060501
  Serious: Yes (Hospitalization)
  Sender: FDA-Public Use
  Company Number: None

PATIENT
  Sex: Female
  Weight: 65.318 kg

DRUGS (10)
  1. CYTOXAN [Suspect]
     Indication: NEOPLASM MALIGNANT
     Dosage: (THERAPY DATES: PRIOR TO ADMISSION)
  2. ETOPOSIDE [Suspect]
     Indication: NEOPLASM MALIGNANT
     Dosage: (THERAPY DATES: PRIOR TO ADMISSION)
  3. CISPLATIN [Suspect]
     Indication: NEOPLASM MALIGNANT
     Dosage: (THERAPY DATES: PRIOR TO ADMISSION)
  4. TOPROL-XL [Concomitant]
  5. XANAX [Concomitant]
  6. TYLENOL (CAPLET) [Concomitant]
  7. PREVACID [Concomitant]
  8. KLOR-CON [Concomitant]
  9. NEURONTIN [Concomitant]
  10. VIT B6 [Concomitant]

REACTIONS (3)
  - PANCYTOPENIA [None]
  - RECTAL HAEMORRHAGE [None]
  - THROMBOCYTOPENIA [None]
